FAERS Safety Report 8791798 (Version 1)
Quarter: 2012Q4

REPORT INFORMATION
  Report Type: 
  Country: GB (occurrence: GB)
  Receive Date: 20120918
  Receipt Date: 20120918
  Transmission Date: 20130627
  Serious: Yes (Life-Threatening)
  Sender: FDA-Public Use
  Company Number: GB-UCBSA-065666

PATIENT
  Age: 62 Year
  Sex: Male

DRUGS (8)
  1. CIMZIA [Suspect]
     Indication: RHEUMATOID ARTHRITIS
     Route: 058
     Dates: start: 20110601, end: 20120701
  2. FUROSEMIDE [Concomitant]
     Route: 048
  3. AMLODIPINE [Concomitant]
     Route: 048
  4. DOXAZOSIN [Concomitant]
     Route: 048
  5. LEFLUNOMIDE [Concomitant]
     Route: 048
  6. LEVOTHYROXINE [Concomitant]
     Route: 048
  7. MOXONIDINE [Concomitant]
     Route: 048
  8. NAPROXEN [Concomitant]
     Route: 048

REACTIONS (2)
  - Pulmonary embolism [Recovering/Resolving]
  - Dyspnoea [Unknown]
